FAERS Safety Report 8502733-4 (Version None)
Quarter: 2012Q3

REPORT INFORMATION
  Report Type: 
  Country: None (occurrence: None)
  Receive Date: 20120706
  Receipt Date: 20120706
  Transmission Date: 20120928
  Serious: Yes (Other)
  Sender: FDA-Public Use
  Company Number: None

PATIENT
  Age: 21 Year
  Sex: Female
  Weight: 60.782 kg

DRUGS (1)
  1. NUVARING [Suspect]
     Dosage: 1 RING MONTH VAG
     Route: 067
     Dates: start: 20120615, end: 20120702

REACTIONS (6)
  - NERVOUSNESS [None]
  - PYREXIA [None]
  - HEART RATE INCREASED [None]
  - HOT FLUSH [None]
  - HYPERTENSION [None]
  - MENOPAUSAL SYMPTOMS [None]
